FAERS Safety Report 8083422-X (Version None)
Quarter: 2012Q1

REPORT INFORMATION
  Report Type: 
  Country: None (occurrence: None)
  Receive Date: 20120127
  Receipt Date: 20110117
  Transmission Date: 20120608
  Serious: No
  Sender: FDA-Public Use
  Company Number: US-ABBOTT-11P-163-0698058-00

PATIENT
  Age: 54 Year
  Sex: Female

DRUGS (10)
  1. FISH OIL [Concomitant]
     Indication: MINERAL SUPPLEMENTATION
  2. METHOTREXATE [Concomitant]
     Indication: RHEUMATOID ARTHRITIS
  3. GARLIC [Concomitant]
     Indication: PRODUCT USED FOR UNKNOWN INDICATION
  4. GLUCOSAMINE [Concomitant]
     Indication: SUPPLEMENTATION THERAPY
  5. ESTRA C [Concomitant]
     Indication: PRODUCT USED FOR UNKNOWN INDICATION
  6. MULTIVITAMIN FOR OVER 50 [Concomitant]
     Indication: PRODUCT USED FOR UNKNOWN INDICATION
  7. HUMIRA [Suspect]
     Indication: RHEUMATOID ARTHRITIS
     Dates: start: 20101001
  8. VITAMIN D [Concomitant]
     Indication: PRODUCT USED FOR UNKNOWN INDICATION
     Dosage: 2-1000MG
  9. NAPROXEN [Concomitant]
     Indication: PAIN
  10. RED YEAST RICE [Concomitant]
     Indication: PRODUCT USED FOR UNKNOWN INDICATION

REACTIONS (1)
  - DRY SKIN [None]
